FAERS Safety Report 8392701 (Version 10)
Quarter: 2014Q1

REPORT INFORMATION
  Report Type: Report from Study
  Country: FR (occurrence: FR)
  Receive Date: 20120206
  Receipt Date: 20140224
  Transmission Date: 20141002
  Serious: Yes (Life-Threatening, Hospitalization)
  Sender: FDA-Public Use
  Company Number: FR-ROCHE-1036956

PATIENT
  Age: 84 Year
  Sex: Male
  Weight: 70 kg

DRUGS (7)
  1. VISMODEGIB [Suspect]
     Indication: BASAL CELL CARCINOMA
     Dosage: LAST DOSE PRIOR TO THE SAE ON 15/JAN/2012
     Route: 048
     Dates: start: 20111207, end: 20120120
  2. PARACETAMOL [Suspect]
     Indication: PAIN
     Route: 065
     Dates: start: 20111201
  3. PARACETAMOL [Suspect]
     Route: 065
     Dates: start: 20120101, end: 20120307
  4. GLUCOR [Concomitant]
     Indication: DIABETES MELLITUS
     Route: 065
     Dates: start: 198001
  5. AMAREL [Concomitant]
     Indication: DIABETES MELLITUS
     Route: 065
     Dates: start: 198001
  6. ZOCOR [Concomitant]
     Indication: DYSLIPIDAEMIA
     Route: 065
     Dates: start: 200201
  7. MOPRAL (FRANCE) [Concomitant]
     Indication: DUODENAL ULCER
     Route: 065
     Dates: start: 199001

REACTIONS (1)
  - Hepatitis [Recovered/Resolved]
